FAERS Safety Report 6865345-4 (Version None)
Quarter: 2010Q3

REPORT INFORMATION
  Report Type: 
  Country: None (occurrence: None)
  Receive Date: 20100721
  Receipt Date: 20080419
  Transmission Date: 20110219
  Serious: No
  Sender: FDA-Public Use
  Company Number: US-PFIZER INC-2008035445

PATIENT
  Sex: Female
  Weight: 88.2 kg

DRUGS (4)
  1. CHANTIX [Suspect]
     Indication: SMOKING CESSATION THERAPY
     Dates: start: 20070901, end: 20080201
  2. SIL-NORBORAL [Concomitant]
  3. AVALIDE [Concomitant]
  4. SIMVASTATIN [Concomitant]

REACTIONS (3)
  - DEPRESSION [None]
  - PRURITUS [None]
  - RASH [None]
